FAERS Safety Report 7409920-7 (Version None)
Quarter: 2011Q2

REPORT INFORMATION
  Report Type: 
  Country: None (occurrence: None)
  Receive Date: 20110412
  Receipt Date: 20110330
  Transmission Date: 20111010
  Serious: Yes (Other)
  Sender: FDA-Public Use
  Company Number: PHHY2011US27194

PATIENT
  Sex: Female

DRUGS (1)
  1. TASIGNA [Suspect]
     Indication: MALIGNANT SOFT TISSUE NEOPLASM
     Dosage: 200 MG, BID
     Route: 048
     Dates: start: 20110307

REACTIONS (4)
  - FAECAL VOLUME DECREASED [None]
  - BACK PAIN [None]
  - URINE OUTPUT DECREASED [None]
  - SLEEP DISORDER [None]
